FAERS Safety Report 21162260 (Version 1)
Quarter: 2022Q3

REPORT INFORMATION
  Report Type: Spontaneous
  Country: US (occurrence: US)
  Receive Date: 20220802
  Receipt Date: 20220802
  Transmission Date: 20221027
  Serious: No
  Sender: FDA-Public Use
  Company Number: US-BRISTOL-MYERS SQUIBB COMPANY-2022-083886

PATIENT
  Age: 72 Year
  Sex: Male
  Weight: 85.09 kg

DRUGS (1)
  1. REVLIMID [Suspect]
     Active Substance: LENALIDOMIDE
     Indication: Plasma cell myeloma
     Dosage: FREQ - DAILY DAYS 1-28 EVERY 28 DAYS
     Route: 048
     Dates: start: 20210311

REACTIONS (1)
  - Platelet count decreased [Recovered/Resolved]
